FAERS Safety Report 7429109-5 (Version None)
Quarter: 2011Q2

REPORT INFORMATION
  Report Type: 
  Country: None (occurrence: None)
  Receive Date: 20110421
  Receipt Date: 20110321
  Transmission Date: 20111010
  Serious: Yes (Other)
  Sender: FDA-Public Use
  Company Number: PHHY2011CA21799

PATIENT
  Sex: Male

DRUGS (4)
  1. CLOZARIL [Suspect]
     Dosage: UNK
     Dates: start: 20110302, end: 20110311
  2. LUVOX [Concomitant]
  3. RIVOTRIL [Concomitant]
  4. ZYPREXA [Concomitant]

REACTIONS (5)
  - NEUROLEPTIC MALIGNANT SYNDROME [None]
  - EXTRAPYRAMIDAL DISORDER [None]
  - BLOOD CREATINE PHOSPHOKINASE INCREASED [None]
  - LEUKOCYTOSIS [None]
  - MUSCLE RIGIDITY [None]
